FAERS Safety Report 16160348 (Version 2)
Quarter: 2019Q2

REPORT INFORMATION
  Report Type: Report from Study
  Country: None (occurrence: US)
  Receive Date: 20190404
  Receipt Date: 20190507
  Transmission Date: 20190711
  Serious: Yes (Other)
  Sender: FDA-Public Use
  Company Number: US-ABBVIE-19K-163-2634346-00

PATIENT
  Age: 49 Year
  Sex: Female

DRUGS (3)
  1. HUMIRA [Suspect]
     Active Substance: ADALIMUMAB
     Dosage: DAY 22
     Route: 058
     Dates: start: 201902
  2. HUMIRA [Suspect]
     Active Substance: ADALIMUMAB
     Dosage: DAY 8
     Route: 058
     Dates: start: 20190119, end: 20190119
  3. HUMIRA [Suspect]
     Active Substance: ADALIMUMAB
     Indication: PSORIASIS
     Dosage: DAY 1
     Route: 058
     Dates: start: 20190111, end: 20190111

REACTIONS (10)
  - Pruritus [Not Recovered/Not Resolved]
  - Headache [Recovered/Resolved]
  - Meniscus injury [Unknown]
  - Skin erosion [Recovering/Resolving]
  - Psoriasis [Not Recovered/Not Resolved]
  - Frustration tolerance decreased [Unknown]
  - Pain [Not Recovered/Not Resolved]
  - Skin irritation [Not Recovered/Not Resolved]
  - Blood pressure increased [Unknown]
  - Cough [Unknown]

NARRATIVE: CASE EVENT DATE: 2019
